FAERS Safety Report 7995338-5 (Version None)
Quarter: 2011Q4

REPORT INFORMATION
  Report Type: 
  Country: None (occurrence: None)
  Receive Date: 20111220
  Receipt Date: 20111207
  Transmission Date: 20120403
  Serious: Yes (Hospitalization)
  Sender: FDA-Public Use
  Company Number: US-ACTELION-A-NJ2011-50006

PATIENT

DRUGS (3)
  1. TRACLEER [Suspect]
     Indication: PULMONARY ARTERIAL HYPERTENSION
     Dosage: UNK
     Route: 048
     Dates: start: 20110101
  2. TRACLEER [Suspect]
     Dosage: UNK
     Route: 048
     Dates: start: 20100304, end: 20110101
  3. PLAVIX [Concomitant]

REACTIONS (5)
  - CARDIAC DISORDER [None]
  - OEDEMA PERIPHERAL [None]
  - ASPIRATION PLEURAL CAVITY [None]
  - PULMONARY OEDEMA [None]
  - LUNG DISORDER [None]
